FAERS Safety Report 8544253-7 (Version None)
Quarter: 2012Q3

REPORT INFORMATION
  Report Type: 
  Country: None (occurrence: None)
  Receive Date: 20120727
  Receipt Date: 20120718
  Transmission Date: 20120928
  Serious: Yes (Other)
  Sender: FDA-Public Use
  Company Number: US-ABBOTT-12P-163-0958155-00

PATIENT
  Sex: Female

DRUGS (5)
  1. HUMIRA [Suspect]
     Route: 058
  2. HUMIRA [Suspect]
     Indication: PSORIASIS
     Dosage: TWO 40MG INJECTIONS ON DAY ONE
     Route: 058
     Dates: start: 20120717, end: 20120717
  3. IRON [Concomitant]
     Indication: PRODUCT USED FOR UNKNOWN INDICATION
     Route: 048
  4. HUMIRA [Suspect]
     Dosage: 40MG ON DAY 8
  5. MULTI-VITAMINS [Concomitant]
     Indication: PRODUCT USED FOR UNKNOWN INDICATION
     Route: 048

REACTIONS (4)
  - ABORTION SPONTANEOUS [None]
  - PLACENTA PRAEVIA [None]
  - HAEMOPTYSIS [None]
  - VAGINAL HAEMORRHAGE [None]
